FAERS Safety Report 18298896 (Version 14)
Quarter: 2021Q3

REPORT INFORMATION
  Report Type: Spontaneous
  Country: CA (occurrence: CA)
  Receive Date: 20200923
  Receipt Date: 20210825
  Transmission Date: 20211014
  Serious: Yes (Other)
  Sender: FDA-Public Use
  Company Number: CA-CELLTRION INC.-2017CA011375

PATIENT

DRUGS (54)
  1. INFLECTRA [Suspect]
     Active Substance: INFLIXIMAB-DYYB
     Dosage: 400 MG,  (EVERY 4 WEEKS)
     Route: 042
     Dates: start: 20181020
  2. INFLECTRA [Suspect]
     Active Substance: INFLIXIMAB-DYYB
     Dosage: 400 MG, (EVERY 4 WEEKS)
     Route: 042
     Dates: start: 20181208
  3. INFLECTRA [Suspect]
     Active Substance: INFLIXIMAB-DYYB
     Dosage: 400 MG, (EVERY 4 WEEKS)
     Route: 042
     Dates: start: 20190615
  4. INFLECTRA [Suspect]
     Active Substance: INFLIXIMAB-DYYB
     Dosage: 400 MG, (EVERY 4 WEEKS)
     Route: 042
     Dates: start: 20191026
  5. INFLECTRA [Suspect]
     Active Substance: INFLIXIMAB-DYYB
     Dosage: 400 MG, (EVERY 4 WEEKS)
     Route: 042
     Dates: start: 20200121
  6. INFLECTRA [Suspect]
     Active Substance: INFLIXIMAB-DYYB
     Dosage: 400 MG, EVERY 4 WEEKS
     Route: 042
     Dates: start: 20210619
  7. COVERSYL [Concomitant]
     Active Substance: PERINDOPRIL
     Dosage: 1 DF (RESTARTED COVERSYL ON 23DEC2020.DOSAGE INFORMATION NOT AVAILABLE)
     Route: 065
     Dates: start: 20201223
  8. INFLECTRA [Suspect]
     Active Substance: INFLIXIMAB-DYYB
     Dosage: 400 MG, (EVERY 4 WEEKS)
     Route: 042
     Dates: start: 20200218
  9. INFLECTRA [Suspect]
     Active Substance: INFLIXIMAB-DYYB
     Dosage: 400 MG, (EVERY 4 WEEKS)
     Route: 042
     Dates: start: 20200825
  10. INFLECTRA [Suspect]
     Active Substance: INFLIXIMAB-DYYB
     Dosage: 400 MG, (EVERY 4 WEEKS)
     Route: 042
     Dates: start: 20201222
  11. INFLECTRA [Suspect]
     Active Substance: INFLIXIMAB-DYYB
     Dosage: 400 MG, (EVERY 4 WEEKS)
     Route: 042
     Dates: start: 20210216
  12. INFLECTRA [Suspect]
     Active Substance: INFLIXIMAB-DYYB
     Dosage: 400 MG,  (EVERY 4 WEEKS)
     Route: 042
     Dates: start: 20181117
  13. INFLECTRA [Suspect]
     Active Substance: INFLIXIMAB-DYYB
     Dosage: 400 MG, (EVERY 4 WEEKS)
     Route: 042
     Dates: start: 20190119
  14. INFLECTRA [Suspect]
     Active Substance: INFLIXIMAB-DYYB
     Dosage: 400 MG, (EVERY 4 WEEKS)
     Route: 042
     Dates: start: 20200328
  15. INFLECTRA [Suspect]
     Active Substance: INFLIXIMAB-DYYB
     Dosage: 400 MG, (EVERY 4 WEEKS)
     Route: 042
     Dates: start: 20200615
  16. INFLECTRA [Suspect]
     Active Substance: INFLIXIMAB-DYYB
     Dosage: 400 MG, (EVERY 4 WEEKS)
     Route: 042
     Dates: start: 20200615
  17. INFLECTRA [Suspect]
     Active Substance: INFLIXIMAB-DYYB
     Dosage: 400 MG, (EVERY 4 WEEKS)
     Route: 042
     Dates: start: 20200714
  18. INFLECTRA [Suspect]
     Active Substance: INFLIXIMAB-DYYB
     Dosage: 400 MG, (EVERY 4 WEEKS)
     Route: 042
     Dates: start: 20200825
  19. INFLECTRA [Suspect]
     Active Substance: INFLIXIMAB-DYYB
     Dosage: 400 MG, (EVERY 4 WEEKS)
     Route: 042
     Dates: start: 20201027
  20. INFLECTRA [Suspect]
     Active Substance: INFLIXIMAB-DYYB
     Dosage: 400 MG, (EVERY 4 WEEKS)
     Route: 042
     Dates: start: 20210119
  21. INFLECTRA [Suspect]
     Active Substance: INFLIXIMAB-DYYB
     Dosage: 400 MG, (EVERY 4 WEEKS)
     Route: 042
     Dates: start: 20191126
  22. INFLECTRA [Suspect]
     Active Substance: INFLIXIMAB-DYYB
     Dosage: 400 MG, (EVERY 4 WEEKS)
     Route: 042
     Dates: start: 20200615
  23. INFLECTRA [Suspect]
     Active Substance: INFLIXIMAB-DYYB
     Dosage: 400 MG, (EVERY 4 WEEKS)
     Route: 042
     Dates: start: 20200922
  24. INFLECTRA [Suspect]
     Active Substance: INFLIXIMAB-DYYB
     Dosage: 400 MG, (EVERY 4 WEEKS)
     Route: 042
     Dates: start: 20201124
  25. INFLECTRA [Suspect]
     Active Substance: INFLIXIMAB-DYYB
     Dosage: 400 MG, (EVERY 4 WEEKS)
     Route: 042
     Dates: start: 20210511
  26. PREDNISONE. [Concomitant]
     Active Substance: PREDNISONE
     Dosage: 5 MG, DAILY
     Route: 048
     Dates: start: 201702
  27. INFLECTRA [Suspect]
     Active Substance: INFLIXIMAB-DYYB
     Dosage: 400 MG, EVERY 0, 2, 6 WEEKS, THEN EVERY 8 WEEKS
     Route: 042
     Dates: start: 20171030
  28. INFLECTRA [Suspect]
     Active Substance: INFLIXIMAB-DYYB
     Dosage: 400 MG, (EVERY 4 WEEKS)
     Route: 042
     Dates: start: 20180310
  29. INFLECTRA [Suspect]
     Active Substance: INFLIXIMAB-DYYB
     Dosage: 400 MG,  (EVERY 4 WEEKS)
     Route: 042
     Dates: start: 20180825
  30. INFLECTRA [Suspect]
     Active Substance: INFLIXIMAB-DYYB
     Dosage: 400 MG, (EVERY 4 WEEKS)
     Route: 042
     Dates: start: 20190511
  31. INFLECTRA [Suspect]
     Active Substance: INFLIXIMAB-DYYB
     Dosage: 400 MG, (EVERY 4 WEEKS)
     Route: 042
     Dates: start: 20210316
  32. INFLECTRA [Suspect]
     Active Substance: INFLIXIMAB-DYYB
     Dosage: 400 MG, (EVERY 4 WEEKS)
     Route: 042
     Dates: start: 20210417
  33. INFLECTRA [Suspect]
     Active Substance: INFLIXIMAB-DYYB
     Dosage: 400 MG, (EVERY 4 WEEKS)
     Route: 042
     Dates: start: 20210511
  34. INFLECTRA [Suspect]
     Active Substance: INFLIXIMAB-DYYB
     Dosage: 400 MG 0, 2, 6 WEEKS, THEN EVERY 8 WEEKS
     Route: 042
     Dates: start: 20180108
  35. INFLECTRA [Suspect]
     Active Substance: INFLIXIMAB-DYYB
     Dosage: 400 MG,  (EVERY 4 WEEKS)
     Route: 042
     Dates: start: 20180310
  36. INFLECTRA [Suspect]
     Active Substance: INFLIXIMAB-DYYB
     Dosage: 400 MG,  (EVERY 4 WEEKS)
     Route: 042
     Dates: start: 20180407
  37. INFLECTRA [Suspect]
     Active Substance: INFLIXIMAB-DYYB
     Dosage: 400 MG,  (EVERY 4 WEEKS)
     Route: 042
     Dates: start: 20180505
  38. INFLECTRA [Suspect]
     Active Substance: INFLIXIMAB-DYYB
     Dosage: 400 MG, (EVERY 4 WEEKS)
     Route: 042
     Dates: start: 20210119
  39. INFLECTRA [Suspect]
     Active Substance: INFLIXIMAB-DYYB
     Dosage: 400 MG, (EVERY 4 WEEKS)
     Route: 042
     Dates: start: 20210511
  40. COVERSYL [Concomitant]
     Active Substance: PERINDOPRIL
     Indication: HYPERTENSION
     Dosage: 1 DF (DOSAGE INFORMATION NOT AVAILABLE)
     Route: 065
  41. INFLECTRA [Suspect]
     Active Substance: INFLIXIMAB-DYYB
     Indication: CROHN^S DISEASE
     Dosage: 400 MG, EVERY 0, 2, 6 WEEKS, THEN EVERY 8 WEEKS
     Route: 042
     Dates: start: 20170919
  42. INFLECTRA [Suspect]
     Active Substance: INFLIXIMAB-DYYB
     Dosage: 400 MG, (EVERY 4 WEEKS)
     Route: 042
     Dates: start: 20180825
  43. INFLECTRA [Suspect]
     Active Substance: INFLIXIMAB-DYYB
     Dosage: 400 MG, (EVERY 4 WEEKS)
     Route: 042
     Dates: start: 20200218
  44. INFLECTRA [Suspect]
     Active Substance: INFLIXIMAB-DYYB
     Dosage: 400 MG, (EVERY 4 WEEKS)
     Route: 042
     Dates: start: 20200328
  45. INFLECTRA [Suspect]
     Active Substance: INFLIXIMAB-DYYB
     Dosage: 400 MG, (EVERY 4 WEEKS)
     Route: 042
     Dates: start: 20200424
  46. INFLECTRA [Suspect]
     Active Substance: INFLIXIMAB-DYYB
     Dosage: 400 MG, (EVERY 4 WEEKS)
     Route: 042
     Dates: start: 20200424
  47. INFLECTRA [Suspect]
     Active Substance: INFLIXIMAB-DYYB
     Dosage: 400 MG, (EVERY 4 WEEKS)
     Route: 042
     Dates: start: 20201027
  48. INFLECTRA [Suspect]
     Active Substance: INFLIXIMAB-DYYB
     Dosage: 400 MG, (EVERY 4 WEEKS)
     Route: 042
     Dates: start: 20210714
  49. INFLECTRA [Suspect]
     Active Substance: INFLIXIMAB-DYYB
     Dosage: 400 MG, (EVERY 4 WEEKS)
     Route: 042
     Dates: start: 20180602
  50. INFLECTRA [Suspect]
     Active Substance: INFLIXIMAB-DYYB
     Dosage: 400 MG,  (EVERY 4 WEEKS)
     Route: 042
     Dates: start: 20180922
  51. INFLECTRA [Suspect]
     Active Substance: INFLIXIMAB-DYYB
     Dosage: 400 MG, (EVERY 4 WEEKS)
     Route: 042
     Dates: start: 20190729
  52. INFLECTRA [Suspect]
     Active Substance: INFLIXIMAB-DYYB
     Dosage: 400 MG, (EVERY 4 WEEKS)
     Route: 042
     Dates: start: 20191217
  53. INFLECTRA [Suspect]
     Active Substance: INFLIXIMAB-DYYB
     Dosage: 400 MG, (EVERY 4 WEEKS)
     Route: 042
     Dates: start: 20200825
  54. IMURAN [Concomitant]
     Active Substance: AZATHIOPRINE
     Dosage: UNK
     Route: 065

REACTIONS (17)
  - Pharyngitis [Not Recovered/Not Resolved]
  - Blood pressure increased [Unknown]
  - Lower respiratory tract infection [Recovered/Resolved]
  - Uveitis [Unknown]
  - Dehydration [Unknown]
  - Condition aggravated [Not Recovered/Not Resolved]
  - Off label use [Unknown]
  - Inappropriate schedule of product administration [Unknown]
  - Conjunctivitis [Not Recovered/Not Resolved]
  - Intentional product use issue [Unknown]
  - Blood pressure fluctuation [Unknown]
  - Malaise [Unknown]
  - Product use issue [Unknown]
  - Therapeutic product effect incomplete [Recovering/Resolving]
  - Oxygen saturation decreased [Unknown]
  - Arthralgia [Not Recovered/Not Resolved]
  - Weight increased [Not Recovered/Not Resolved]

NARRATIVE: CASE EVENT DATE: 20170919
